FAERS Safety Report 24706586 (Version 1)
Quarter: 2024Q4

REPORT INFORMATION
  Report Type: Spontaneous
  Country: IN (occurrence: IN)
  Receive Date: 20241206
  Receipt Date: 20241206
  Transmission Date: 20250115
  Serious: Yes (Other)
  Sender: ELI LILLY AND COMPANY
  Company Number: IN-ELI_LILLY_AND_COMPANY-IN202411018763

PATIENT
  Age: 69 Year
  Sex: Male

DRUGS (6)
  1. HUMALOG MIX75/25 [Suspect]
     Active Substance: INSULIN LISPRO
     Indication: Product used for unknown indication
     Dosage: 30 U, EACH MORNING
     Route: 065
     Dates: start: 202310
  2. HUMALOG MIX75/25 [Suspect]
     Active Substance: INSULIN LISPRO
     Dosage: 20 U, EACH EVENING (AT NIGHT)
     Route: 065
     Dates: start: 202310
  3. METFORMIN [Concomitant]
     Active Substance: METFORMIN HYDROCHLORIDE
     Indication: Product used for unknown indication
     Dosage: 1000 MG, BID
     Route: 065
     Dates: start: 202310
  4. METFORMIN [Concomitant]
     Active Substance: METFORMIN HYDROCHLORIDE
     Dosage: 850 MG, BID
     Route: 065
     Dates: start: 202310
  5. PANCREATIN [Concomitant]
     Active Substance: PANCRELIPASE
     Indication: Product used for unknown indication
     Dosage: UNK
     Dates: start: 202310
  6. CALCIUM [Concomitant]
     Active Substance: CALCIUM
     Indication: Product used for unknown indication
     Dosage: UNK
     Dates: start: 202310

REACTIONS (17)
  - Pancreatic calcification [Unknown]
  - Blood glucose increased [Unknown]
  - Frequent bowel movements [Unknown]
  - Nausea [Unknown]
  - Eosinophil count increased [Unknown]
  - Feeding disorder [Unknown]
  - Dizziness [Unknown]
  - Diarrhoea [Unknown]
  - Faeces discoloured [Unknown]
  - Abnormal faeces [Unknown]
  - Hyperhidrosis [Unknown]
  - Hypotension [Unknown]
  - Eosinophil count increased [Unknown]
  - Feeling hot [Unknown]
  - Pruritus [Unknown]
  - Injection site pain [Unknown]
  - Injection site reaction [Not Recovered/Not Resolved]

NARRATIVE: CASE EVENT DATE: 20240501
